FAERS Safety Report 6493708-8 (Version None)
Quarter: 2009Q4

REPORT INFORMATION
  Report Type: 
  Country: None (occurrence: None)
  Receive Date: 20091214
  Receipt Date: 20091204
  Transmission Date: 20100525
  Serious: Yes (Life-Threatening, Hospitalization)
  Sender: FDA-Public Use
  Company Number: JP-AMGEN-US379601

PATIENT
  Sex: Male
  Weight: 80 kg

DRUGS (15)
  1. ENBREL [Suspect]
     Indication: DRUG USE FOR UNKNOWN INDICATION
     Route: 058
     Dates: start: 20091015, end: 20091110
  2. ENBREL [Suspect]
     Indication: POLYCHONDRITIS
  3. RHEUMATREX [Concomitant]
     Indication: OSTEITIS
     Route: 048
     Dates: start: 20090327, end: 20091112
  4. FOLIAMIN [Concomitant]
     Indication: PROPHYLAXIS
     Route: 048
     Dates: start: 20090327, end: 20091112
  5. BONALON [Concomitant]
     Indication: PROPHYLAXIS
     Route: 048
     Dates: start: 20090327
  6. ALFAROL [Concomitant]
     Indication: PROPHYLAXIS
     Route: 048
     Dates: start: 20090319
  7. LIPITOR [Concomitant]
     Indication: DRUG USE FOR UNKNOWN INDICATION
     Route: 048
     Dates: start: 20091112
  8. MUCOSTA [Concomitant]
     Indication: PROPHYLAXIS
     Route: 048
     Dates: start: 20090319
  9. CRESTOR [Concomitant]
     Indication: DRUG USE FOR UNKNOWN INDICATION
     Route: 048
     Dates: start: 20090406
  10. TAKEPRON [Concomitant]
     Indication: PROPHYLAXIS
     Route: 048
     Dates: start: 20090319
  11. WARFARIN SODIUM [Concomitant]
     Indication: PROPHYLAXIS
     Route: 048
     Dates: start: 20090319
  12. BAKTAR [Concomitant]
     Indication: PROPHYLAXIS
     Route: 048
     Dates: start: 20090326, end: 20091112
  13. ISCOTIN [Concomitant]
     Indication: PROPHYLAXIS
     Route: 048
     Dates: start: 20090909, end: 20091112
  14. PREDONINE [Concomitant]
     Indication: OSTEITIS
     Route: 048
     Dates: start: 20090903, end: 20091112
  15. MUCODYNE [Concomitant]
     Indication: OSTEITIS
     Route: 048
     Dates: start: 20090415

REACTIONS (3)
  - DECREASED APPETITE [None]
  - DEHYDRATION [None]
  - NEPHROTIC SYNDROME [None]
